FAERS Safety Report 21198186 (Version 1)
Quarter: 2022Q3

REPORT INFORMATION
  Report Type: Spontaneous
  Country: US (occurrence: US)
  Receive Date: 20220811
  Receipt Date: 20220811
  Transmission Date: 20221027
  Serious: Yes (Hospitalization)
  Sender: FDA-Public Use
  Company Number: US-STRIDES ARCOLAB LIMITED-2022SP010144

PATIENT
  Age: 60 Year
  Sex: Female

DRUGS (1)
  1. OXYCODONE [Suspect]
     Active Substance: OXYCODONE
     Indication: Product used for unknown indication
     Dosage: UNK, PILLS
     Route: 048

REACTIONS (4)
  - Encephalopathy [Unknown]
  - Anterograde amnesia [Unknown]
  - Delirium [Unknown]
  - Drug abuse [Unknown]
